FAERS Safety Report 5069796-2 (Version None)
Quarter: 2006Q3

REPORT INFORMATION
  Report Type: 
  Country: None (occurrence: None)
  Receive Date: 20060731
  Receipt Date: 20060721
  Transmission Date: 20061208
  Serious: Yes (Hospitalization)
  Sender: FDA-Public Use
  Company Number: 2006083031

PATIENT
  Age: 73 Year
  Sex: Male

DRUGS (5)
  1. TORVAST            (ATORVASTATIN) [Suspect]
     Indication: INFARCTION
     Dosage: 20 MG (20 MG, 1IN 1 D), ORAL
     Route: 048
     Dates: start: 20051219, end: 20060110
  2. RAMIPRIL [Concomitant]
  3. METOPROLOL TARTRATE [Concomitant]
  4. ACETYLSALICYLIC ACID SRT [Concomitant]
  5. OMEPRAZOLE [Concomitant]

REACTIONS (2)
  - CYTOLYTIC HEPATITIS [None]
  - HEPATITIS CHOLESTATIC [None]
